FAERS Safety Report 20591676 (Version 1)
Quarter: 2022Q1

REPORT INFORMATION
  Report Type: Report from Study
  Country: US (occurrence: None)
  Receive Date: 20220314
  Receipt Date: 20220314
  Transmission Date: 20220423
  Serious: Yes (Hospitalization)
  Sender: FDA-Public Use
  Company Number: US-Eisai Medical Research-EC-2022-110364

PATIENT
  Age: 66 Year
  Sex: Male
  Weight: 110.68 kg

DRUGS (19)
  1. LENVIMA [Suspect]
     Active Substance: LENVATINIB
     Indication: Renal cancer
     Route: 048
     Dates: start: 20211110
  2. LENVIMA [Suspect]
     Active Substance: LENVATINIB
     Indication: Renal cell carcinoma
     Route: 048
     Dates: start: 20220301
  3. LENVIMA [Suspect]
     Active Substance: LENVATINIB
     Indication: Metastases to bone
  4. AMOXICILLIN [Suspect]
     Active Substance: AMOXICILLIN
     Indication: Ear infection
     Dosage: DOSE AND FREQUENCY UNKNOWN
     Route: 065
     Dates: start: 20220301
  5. ACIPHEX [Concomitant]
     Active Substance: RABEPRAZOLE SODIUM
     Route: 048
  6. ALLOPURINOL [Concomitant]
     Active Substance: ALLOPURINOL
  7. ARIPIPRAZOLE [Concomitant]
     Active Substance: ARIPIPRAZOLE
  8. AUGMENTIN [Concomitant]
     Active Substance: AMOXICILLIN\CLAVULANATE POTASSIUM
  9. CLONAZEPAM [Concomitant]
     Active Substance: CLONAZEPAM
  10. GABAPENTIN [Concomitant]
     Active Substance: GABAPENTIN
  11. KEYTRUDA [Concomitant]
     Active Substance: PEMBROLIZUMAB
  12. LAMOTRIGINE [Concomitant]
     Active Substance: LAMOTRIGINE
  13. MEGESTROL [Concomitant]
     Active Substance: MEGESTROL
  14. METFORMIN [Concomitant]
     Active Substance: METFORMIN HYDROCHLORIDE
  15. OXYCODONE [Concomitant]
     Active Substance: OXYCODONE
  16. PREDNISONE [Concomitant]
     Active Substance: PREDNISONE
  17. QUETIAPINE [Concomitant]
     Active Substance: QUETIAPINE
  18. VIIBRYD [Concomitant]
     Active Substance: VILAZODONE HYDROCHLORIDE
  19. VYVANSE [Concomitant]
     Active Substance: LISDEXAMFETAMINE DIMESYLATE

REACTIONS (2)
  - Rash [Not Recovered/Not Resolved]
  - Ear infection [Not Recovered/Not Resolved]

NARRATIVE: CASE EVENT DATE: 20220301
